FAERS Safety Report 23641810 (Version 1)
Quarter: 2024Q1

REPORT INFORMATION
  Report Type: Spontaneous
  Country: US (occurrence: US)
  Receive Date: 20240318
  Receipt Date: 20240318
  Transmission Date: 20240409
  Serious: No
  Sender: FDA-Public Use
  Company Number: US-ESPERIONTHERAPEUTICS-2023USA00260

PATIENT
  Sex: Female
  Weight: 82.54 kg

DRUGS (13)
  1. NEXLETOL [Suspect]
     Active Substance: BEMPEDOIC ACID
     Indication: Hyperlipidaemia
     Dosage: 180 MILLIGRAM, ONCE EVERY 3RD DAY
     Route: 065
     Dates: start: 20220817, end: 202302
  2. NEXLETOL [Suspect]
     Active Substance: BEMPEDOIC ACID
     Indication: Lipoprotein (a) increased
     Dosage: 180 MILLIGRAM, TIW
     Route: 065
     Dates: start: 202302
  3. NEXLIZET [Suspect]
     Active Substance: BEMPEDOIC ACID\EZETIMIBE
     Indication: Low density lipoprotein increased
     Dosage: 180/10 MILLIGRAM, QD
     Route: 048
     Dates: start: 202010
  4. NEXLIZET [Suspect]
     Active Substance: BEMPEDOIC ACID\EZETIMIBE
     Indication: Lipoprotein (a) increased
  5. ZETIA [Concomitant]
     Active Substance: EZETIMIBE
     Dosage: 10 MILLIGRAM
     Route: 065
     Dates: start: 20220817
  6. PRALUENT [Concomitant]
     Active Substance: ALIROCUMAB
     Dosage: 150 MILLIGRAM
     Route: 065
  7. VASCEPA [Concomitant]
     Active Substance: ICOSAPENT ETHYL
     Dosage: 3 GRAM, QD
     Route: 065
  8. PLAVIX [Concomitant]
     Active Substance: CLOPIDOGREL BISULFATE
     Dosage: 75 MILLIGRAM
     Route: 065
  9. METOPROLOL [Concomitant]
     Active Substance: METOPROLOL
     Dosage: 12.5 MILLIGRAM, BID
     Route: 065
  10. VITAMIN D NOS [Concomitant]
     Active Substance: VITAMIN D NOS
     Dosage: 1000 INTERNATIONAL UNIT, TIW
     Route: 065
  11. VITAMIN B12 [Concomitant]
     Active Substance: CYANOCOBALAMIN
     Dosage: 25 MILLIGRAM
     Route: 065
  12. FOLIC ACID [Concomitant]
     Active Substance: FOLIC ACID
     Dosage: 40 MICROGRAM
     Route: 065
  13. VITAMIN C [Concomitant]
     Active Substance: ASCORBIC ACID
     Dosage: 500 MILLIGRAM
     Route: 065

REACTIONS (5)
  - Computerised tomogram heart abnormal [Unknown]
  - Inappropriate schedule of product administration [Not Recovered/Not Resolved]
  - Tendon disorder [Not Recovered/Not Resolved]
  - Blood uric acid increased [Not Recovered/Not Resolved]
  - Blood urea increased [Not Recovered/Not Resolved]

NARRATIVE: CASE EVENT DATE: 20220817
